FAERS Safety Report 13347865 (Version 2)
Quarter: 2021Q2

REPORT INFORMATION
  Report Type: Report from Study
  Country: US (occurrence: US)
  Receive Date: 20170317
  Receipt Date: 20210618
  Transmission Date: 20210716
  Serious: Yes (Other)
  Sender: FDA-Public Use
  Company Number: US-AMGEN-USASP2017037665

PATIENT
  Age: 56 Year
  Sex: Male

DRUGS (2)
  1. ENBREL [Suspect]
     Active Substance: ETANERCEPT
     Indication: PSORIASIS
     Dosage: 50 MILLIGRAM, QWK
     Route: 065
  2. ENBREL [Suspect]
     Active Substance: ETANERCEPT
     Indication: PSORIATIC ARTHROPATHY
     Dosage: 50 MILLIGRAM, QWK
     Route: 065

REACTIONS (7)
  - Weight decreased [Unknown]
  - Pneumonia [Unknown]
  - Hypoglycaemia [Unknown]
  - Dry skin [Unknown]
  - Tremor [Not Recovered/Not Resolved]
  - Influenza [Unknown]
  - Illness [Unknown]

NARRATIVE: CASE EVENT DATE: 2017
